FAERS Safety Report 6326874-5 (Version None)
Quarter: 2009Q3

REPORT INFORMATION
  Report Type: 
  Country: None (occurrence: None)
  Receive Date: 20090818
  Receipt Date: 20090611
  Transmission Date: 20100115
  Serious: No
  Sender: FDA-Public Use
  Company Number: WAES 0906USA02277

PATIENT
  Age: 62 Year
  Sex: Female

DRUGS (6)
  1. JANUVIA [Suspect]
     Indication: DIABETES MELLITUS
     Dosage: 100 MG/DAILY/PO
     Route: 048
     Dates: start: 20090101, end: 20090610
  2. AMARYL [Concomitant]
  3. CYMBALTA [Concomitant]
  4. HYZAAR [Concomitant]
  5. GLYBURIDE [Concomitant]
  6. VITAMIN B (UNSPECIFIED) [Concomitant]

REACTIONS (1)
  - ALOPECIA [None]
